FAERS Safety Report 21466549 (Version 1)
Quarter: 2022Q4

REPORT INFORMATION
  Report Type: Report from Study
  Country: US (occurrence: US)
  Receive Date: 20221017
  Receipt Date: 20221017
  Transmission Date: 20230113
  Serious: Yes (Other)
  Sender: FDA-Public Use
  Company Number: US-ABBVIE-22K-163-4503556-00

PATIENT
  Age: 68 Year
  Sex: Female
  Weight: 78.471 kg

DRUGS (7)
  1. HUMIRA [Suspect]
     Active Substance: ADALIMUMAB
     Indication: Uveitis
     Dosage: 40 MG
     Route: 058
     Dates: start: 202107, end: 202204
  2. HUMIRA [Suspect]
     Active Substance: ADALIMUMAB
     Indication: Birdshot chorioretinopathy
  3. moderna Covid19 vaccine [Concomitant]
     Indication: COVID-19 immunisation
     Dosage: ONE IN ONCE, FIRST DOSE
     Route: 030
     Dates: start: 20210205, end: 20210205
  4. moderna Covid19 vaccine [Concomitant]
     Indication: COVID-19 immunisation
     Dosage: ONE IN ONCE, SECOND DOSE
     Route: 030
     Dates: start: 20210305, end: 20210305
  5. moderna Covid19 vaccine [Concomitant]
     Indication: COVID-19 immunisation
     Dosage: ONE IN ONCE, FOURTH (SECOND BOOSTER) DOSE
     Route: 030
     Dates: start: 20220422, end: 20220422
  6. moderna Covid19 vaccine [Concomitant]
     Indication: COVID-19 immunisation
     Dosage: ONE IN ONCE, THIRD (FIRST BOOSTER) DOSE
     Route: 030
     Dates: start: 20211020, end: 20211020
  7. DUREZOL [Concomitant]
     Active Substance: DIFLUPREDNATE
     Indication: Cataract

REACTIONS (16)
  - Ovarian cancer stage IV [Not Recovered/Not Resolved]
  - Ovarian cancer metastatic [Recovered/Resolved]
  - Eye swelling [Not Recovered/Not Resolved]
  - COVID-19 [Recovered/Resolved]
  - Pain [Not Recovered/Not Resolved]
  - Stomach mass [Recovered/Resolved]
  - Back pain [Recovered/Resolved]
  - Urinary incontinence [Recovered/Resolved]
  - Vitreous floaters [Not Recovered/Not Resolved]
  - Neoplasm malignant [Recovering/Resolving]
  - Procedural pain [Not Recovered/Not Resolved]
  - Neuropathy peripheral [Unknown]
  - Bronchitis [Recovered/Resolved]
  - Dysgraphia [Unknown]
  - Depression [Unknown]
  - Cataract [Recovered/Resolved]

NARRATIVE: CASE EVENT DATE: 20210801
